FAERS Safety Report 10182522 (Version 1)
Quarter: 2014Q2

REPORT INFORMATION
  Report Type: Spontaneous
  Country: US (occurrence: None)
  Receive Date: 20140516
  Receipt Date: 20140516
  Transmission Date: 20141212
  Serious: Yes (Other)
  Sender: FDA-Public Use
  Company Number: 20140249

PATIENT
  Age: 19 Year
  Sex: Female

DRUGS (2)
  1. DEXAMETHASONE SODIUM PHOSPHATE [Suspect]
     Indication: ENDOSCOPY
     Route: 042
  2. DEXAMETHASONE SODIUM PHOSPHATE [Suspect]
     Indication: NAUSEA
     Route: 042

REACTIONS (2)
  - Insulin resistance [None]
  - Hyperglycaemia [None]
